FAERS Safety Report 13577163 (Version 1)
Quarter: 2017Q2

REPORT INFORMATION
  Report Type: Spontaneous
  Country: US (occurrence: US)
  Receive Date: 20170524
  Receipt Date: 20170524
  Transmission Date: 20170830
  Serious: No
  Sender: FDA-Public Use
  Company Number: US-FRESENIUS KABI-FK201704377

PATIENT
  Sex: Female
  Weight: 64 kg

DRUGS (1)
  1. DIPRIVAN [Suspect]
     Active Substance: PROPOFOL
     Indication: COLONOSCOPY
     Route: 065

REACTIONS (1)
  - Oculogyric crisis [Recovered/Resolved]
